FAERS Safety Report 6905627-0 (Version None)
Quarter: 2010Q3

REPORT INFORMATION
  Report Type: 
  Country: None (occurrence: None)
  Receive Date: 20100804
  Receipt Date: 20100721
  Transmission Date: 20110219
  Serious: Yes (Death)
  Sender: FDA-Public Use
  Company Number: AU-MYLANLABS-2010S1013026

PATIENT
  Age: 36 Year
  Sex: Male

DRUGS (4)
  1. CITALOPRAM [Suspect]
     Route: 065
  2. METHADONE HCL [Suspect]
     Route: 065
  3. ALPRAZOLAM [Suspect]
     Route: 065
  4. OLANZAPINE [Suspect]
     Route: 065

REACTIONS (1)
  - SEROTONIN SYNDROME [None]
